FAERS Safety Report 4289276-1 (Version None)
Quarter: 2004Q1

REPORT INFORMATION
  Report Type: 
  Country: None (occurrence: None)
  Receive Date: 20040206
  Receipt Date: 20040126
  Transmission Date: 20041129
  Serious: Yes (Death, Hospitalization)
  Sender: FDA-Public Use
  Company Number: 03P-056-0242453-00

PATIENT
  Age: 28 Year
  Sex: Female

DRUGS (3)
  1. DEPAKENE [Suspect]
     Indication: EPILEPSY
     Dosage: 200 MG, ORAL
     Route: 048
     Dates: start: 19880101, end: 20031107
  2. LAMOTRIGINE [Suspect]
     Indication: EPILEPSY
     Dosage: 75 MG, ORAL
     Route: 048
     Dates: start: 20000101, end: 20031107
  3. CLOBAZAM [Concomitant]

REACTIONS (6)
  - BRAIN NEOPLASM [None]
  - GENERAL PHYSICAL HEALTH DETERIORATION [None]
  - GRAND MAL CONVULSION [None]
  - HEMIPLEGIA [None]
  - MUSCLE SPASTICITY [None]
  - TREMOR [None]
